FAERS Safety Report 21960749 (Version 1)
Quarter: 2023Q1

REPORT INFORMATION
  Report Type: Other
  Country: CA (occurrence: None)
  Receive Date: 20230207
  Receipt Date: 20230207
  Transmission Date: 20230417
  Serious: Yes (Hospitalization)
  Sender: FDA-Public Use
  Company Number: CA-ROCHE-3219593

PATIENT
  Sex: Female

DRUGS (1)
  1. TECENTRIQ [Suspect]
     Active Substance: ATEZOLIZUMAB
     Indication: Triple negative breast cancer
     Dosage: MORE DOSAGE INFORMATION IS 840 MG EVERY TWO WEEKS
     Route: 042
     Dates: start: 20200817

REACTIONS (3)
  - Immune-mediated enterocolitis [Unknown]
  - Colitis [Unknown]
  - Neutropenia [Unknown]
